FAERS Safety Report 4875104-X (Version None)
Quarter: 2006Q1

REPORT INFORMATION
  Report Type: 
  Country: None (occurrence: None)
  Receive Date: 20060109
  Receipt Date: 20051223
  Transmission Date: 20060701
  Serious: Yes (Other)
  Sender: FDA-Public Use
  Company Number: GB-GLAXOSMITHKLINE-B0404835A

PATIENT
  Age: 78 Year
  Sex: Male

DRUGS (5)
  1. AVODART [Suspect]
     Indication: URINARY RETENTION
     Dosage: .5MG PER DAY
     Route: 048
  2. WARFARIN [Concomitant]
  3. RESERPINE [Concomitant]
  4. CARDIO EXEL [Concomitant]
  5. HYDROCORTISONE [Concomitant]

REACTIONS (1)
  - PHIMOSIS [None]
